FAERS Safety Report 14542321 (Version 1)
Quarter: 2018Q1

REPORT INFORMATION
  Report Type: Spontaneous
  Country: US (occurrence: US)
  Receive Date: 20180216
  Receipt Date: 20180216
  Transmission Date: 20180509
  Serious: Yes (Hospitalization)
  Sender: FDA-Public Use
  Company Number: US-OTSUKA-DJ20127885

PATIENT

DRUGS (1)
  1. ABILIFY [Suspect]
     Active Substance: ARIPIPRAZOLE
     Route: 065

REACTIONS (18)
  - Dizziness [Unknown]
  - Abdominal pain upper [Unknown]
  - Memory impairment [Unknown]
  - Anxiety [Unknown]
  - Fatigue [Unknown]
  - Musculoskeletal stiffness [Unknown]
  - Dry mouth [Unknown]
  - Asthenia [Unknown]
  - Disturbance in attention [Unknown]
  - Somnolence [Unknown]
  - Agitation [Unknown]
  - Oedema peripheral [Unknown]
  - Nausea [Unknown]
  - Peripheral swelling [Unknown]
  - Tardive dyskinesia [Unknown]
  - Vision blurred [Unknown]
  - Headache [Unknown]
  - Salivary hypersecretion [Unknown]
